FAERS Safety Report 5593170-3 (Version None)
Quarter: 2008Q1

REPORT INFORMATION
  Report Type: 
  Country: None (occurrence: None)
  Receive Date: 20080114
  Receipt Date: 20080114
  Transmission Date: 20080703
  Serious: No
  Sender: FDA-Public Use
  Company Number: None

PATIENT
  Age: 49 Year
  Sex: Female
  Weight: 65.318 kg

DRUGS (1)
  1. ACTONEL [Suspect]
     Indication: OSTEOPENIA
     Dosage: 1 WEEKLY PO
     Route: 048
     Dates: start: 20070601, end: 20070621

REACTIONS (2)
  - ARTHRALGIA [None]
  - MYALGIA [None]
